FAERS Safety Report 7666001-5 (Version None)
Quarter: 2011Q3

REPORT INFORMATION
  Report Type: 
  Country: None (occurrence: None)
  Receive Date: 20110806
  Receipt Date: 20110317
  Transmission Date: 20111222
  Serious: No
  Sender: FDA-Public Use
  Company Number: US-ABBOTT-11P-163-0712369-00

PATIENT
  Sex: Female
  Weight: 56.75 kg

DRUGS (4)
  1. NORVASC [Concomitant]
     Indication: BLOOD PRESSURE
  2. VYTORIN [Concomitant]
     Indication: BLOOD CHOLESTEROL INCREASED
     Dosage: 10/80 MG
  3. NIASPAN [Suspect]
     Indication: BLOOD TRIGLYCERIDES INCREASED
     Dates: start: 20110101
  4. METOPROLOL TARTRATE [Concomitant]
     Indication: CARDIAC DISORDER
     Dates: start: 19950101

REACTIONS (1)
  - MUSCULOSKELETAL STIFFNESS [None]
